FAERS Safety Report 4371250-8 (Version None)
Quarter: 2004Q2

REPORT INFORMATION
  Report Type: 
  Country: None (occurrence: None)
  Receive Date: 20040603
  Receipt Date: 20040519
  Transmission Date: 20050107
  Serious: Yes (Other)
  Sender: FDA-Public Use
  Company Number: 200417922BWH

PATIENT
  Age: 46 Year
  Sex: Female
  Weight: 54.4316 kg

DRUGS (5)
  1. AVELOX [Suspect]
     Indication: RESPIRATORY TRACT INFECTION
     Dosage: 400 MG, QD, ORAL
     Route: 048
     Dates: start: 20031104, end: 20031113
  2. TEMAZEPAM [Concomitant]
  3. XOPENEX [Concomitant]
  4. BENICAR [Concomitant]
  5. TOPROL-XL [Concomitant]

REACTIONS (14)
  - ANAPHYLACTIC SHOCK [None]
  - ARRHYTHMIA [None]
  - ARTERIOSPASM CORONARY [None]
  - CARDIAC ARREST [None]
  - CARDIAC VALVE DISEASE [None]
  - DIPLOPIA [None]
  - FALL [None]
  - FEELING ABNORMAL [None]
  - MENTAL IMPAIRMENT [None]
  - MITRAL VALVE INCOMPETENCE [None]
  - MYOCARDIAL ISCHAEMIA [None]
  - NIGHTMARE [None]
  - SUPRAVENTRICULAR TACHYCARDIA [None]
  - TINNITUS [None]
